FAERS Safety Report 4686239-9 (Version None)
Quarter: 2005Q2

REPORT INFORMATION
  Report Type: 
  Country: None (occurrence: None)
  Receive Date: 20050606
  Receipt Date: 20050523
  Transmission Date: 20051028
  Serious: Yes (Hospitalization, Other)
  Sender: FDA-Public Use
  Company Number: 2005BI002687

PATIENT
  Age: 53 Year
  Sex: Female

DRUGS (16)
  1. AVONEX [Suspect]
     Indication: MULTIPLE SCLEROSIS
     Dosage: 30 UG; QW; IM
     Route: 030
     Dates: start: 19981001
  2. AVONEX [Suspect]
     Indication: MULTIPLE SCLEROSIS
     Dosage: 30 UG; QW; IM
     Route: 030
  3. NORVASC [Concomitant]
  4. AVAPRO [Concomitant]
  5. ACTONEL [Concomitant]
  6. OSCAL [Concomitant]
  7. VITAMIN B COMPLEX CAP [Concomitant]
  8. VITAMIN CAP [Concomitant]
  9. MAXZIDE [Concomitant]
  10. ARICEPT [Concomitant]
  11. DARVOCET [Concomitant]
  12. ROBAXIN [Concomitant]
  13. BACLOFEN [Concomitant]
  14. ACETYLSALICYLIC ACID SRT [Concomitant]
  15. CELEXA [Concomitant]
  16. POTASSIUM CHLORIDE [Concomitant]

REACTIONS (16)
  - ANAEMIA [None]
  - BLOOD PRESSURE INADEQUATELY CONTROLLED [None]
  - CLOSED HEAD INJURY [None]
  - EAR TUBE INSERTION [None]
  - FALL [None]
  - INTRACRANIAL ANEURYSM [None]
  - NEUTROPENIA [None]
  - OSTEOPOROSIS [None]
  - PAIN IN EXTREMITY [None]
  - PELVIC FRACTURE [None]
  - RETINAL HAEMORRHAGE [None]
  - RETINAL VASCULAR THROMBOSIS [None]
  - RETINAL VEIN OCCLUSION [None]
  - SPINAL OSTEOARTHRITIS [None]
  - THROMBOCYTOPENIA [None]
  - WHITE BLOOD CELL COUNT DECREASED [None]
